FAERS Safety Report 25212119 (Version 1)
Quarter: 2025Q2

REPORT INFORMATION
  Report Type: Spontaneous
  Country: US (occurrence: US)
  Receive Date: 20250418
  Receipt Date: 20250418
  Transmission Date: 20250716
  Serious: Yes (Other)
  Sender: JOHNSON AND JOHNSON
  Company Number: US-JNJFOC-20250422497

PATIENT
  Age: 65 Year
  Sex: Male

DRUGS (1)
  1. CARVYKTI [Suspect]
     Active Substance: CILTACABTAGENE AUTOLEUCEL
     Indication: Plasma cell myeloma refractory
     Route: 065

REACTIONS (5)
  - Guillain-Barre syndrome [Recovering/Resolving]
  - Cytokine release syndrome [Recovering/Resolving]
  - Neurotoxicity [Recovering/Resolving]
  - Aphasia [Unknown]
  - Confusional state [Unknown]
